FAERS Safety Report 24262860 (Version 2)
Quarter: 2025Q4

REPORT INFORMATION
  Report Type: Report from Study
  Country: CA (occurrence: CA)
  Receive Date: 20240829
  Receipt Date: 20251208
  Transmission Date: 20260118
  Serious: No
  Sender: SANDOZ
  Company Number: CA-SANDOZ-SDZ2024CA076222

PATIENT
  Sex: Male

DRUGS (1)
  1. HYRIMOZ [Suspect]
     Active Substance: ADALIMUMAB-ADAZ
     Indication: Ankylosing spondylitis
     Dosage: 40 MG, Q2W
     Route: 058
     Dates: start: 20240416

REACTIONS (1)
  - Injection site pain [Unknown]
